FAERS Safety Report 21932662 (Version 2)
Quarter: 2023Q1

REPORT INFORMATION
  Report Type: Spontaneous
  Country: SI (occurrence: SI)
  Receive Date: 20230131
  Receipt Date: 20230318
  Transmission Date: 20230417
  Serious: Yes (Hospitalization)
  Sender: FDA-Public Use
  Company Number: SI-002147023-NVSC2023SI016109

PATIENT
  Age: 65 Year
  Sex: Female
  Weight: 80 kg

DRUGS (19)
  1. ENTRESTO [Suspect]
     Active Substance: SACUBITRIL\VALSARTAN
     Indication: Cardiac failure
     Dosage: 1 DOSAGE FORM, BID (24/26 MG)
     Route: 065
  2. ENTRESTO [Suspect]
     Active Substance: SACUBITRIL\VALSARTAN
     Dosage: 1 DOSAGE FORM, (97/103 MG)
     Route: 065
  3. ENTRESTO [Suspect]
     Active Substance: SACUBITRIL\VALSARTAN
     Dosage: 1 DOSAGE FORM, BID (49/51 MG)
     Route: 065
  4. FUROSEMIDE [Suspect]
     Active Substance: FUROSEMIDE
     Indication: Cardiac failure
     Dosage: 0.5 DOSAGE FORM (EVERY OTHER DAY)
     Route: 065
  5. FUROSEMIDE [Suspect]
     Active Substance: FUROSEMIDE
     Dosage: UNK, Q2W
     Route: 065
  6. FUROSEMIDE [Suspect]
     Active Substance: FUROSEMIDE
     Dosage: (1-2) QD
     Route: 065
  7. BISOPROLOL [Suspect]
     Active Substance: BISOPROLOL
     Indication: Cardiac failure
     Dosage: 10 MG (2X5 MG)
     Route: 065
  8. EPLERENONE [Suspect]
     Active Substance: EPLERENONE
     Indication: Cardiac failure
     Dosage: 25 MG
     Route: 065
  9. EPLERENONE [Suspect]
     Active Substance: EPLERENONE
     Dosage: 50 MG
     Route: 065
  10. ROSUVASTATIN [Suspect]
     Active Substance: ROSUVASTATIN
     Indication: Cardiac failure
     Dosage: 20 MG
     Route: 065
  11. PERINDOPRIL [Concomitant]
     Active Substance: PERINDOPRIL
     Indication: Cardiac failure
     Dosage: 4 MG
     Route: 065
  12. SPIRONOLACTONE [Concomitant]
     Active Substance: SPIRONOLACTONE
     Indication: Cardiac failure
     Dosage: 12.5 MG
     Route: 065
  13. ASPIRIN [Concomitant]
     Active Substance: ASPIRIN
     Indication: Cardiac failure
     Dosage: 100 MG
     Route: 065
  14. NEBIVOLOL [Concomitant]
     Active Substance: NEBIVOLOL
     Indication: Cardiac failure
     Dosage: 2.5 MG
     Route: 065
  15. LOSARTAN [Concomitant]
     Active Substance: LOSARTAN
     Indication: Cardiac failure
     Dosage: 50 MG
     Route: 065
  16. LOSARTAN [Concomitant]
     Active Substance: LOSARTAN
     Dosage: UNK
     Route: 065
  17. IVABRADINE [Concomitant]
     Active Substance: IVABRADINE
     Indication: Cardiac failure
     Dosage: 5 MG, BID
     Route: 065
  18. IVABRADINE [Concomitant]
     Active Substance: IVABRADINE
     Dosage: 7.5 MG, BID
     Route: 065
  19. BUDESONIDE [Concomitant]
     Active Substance: BUDESONIDE
     Indication: Cardiac failure
     Dosage: 1 DOSAGE FORM (160/4.5 MCG), PRN
     Route: 065

REACTIONS (12)
  - Oedema [Recovering/Resolving]
  - Dyspnoea [Recovering/Resolving]
  - Performance status decreased [Recovering/Resolving]
  - Asthma [Unknown]
  - Respiratory tract infection [Unknown]
  - Chest discomfort [Unknown]
  - Chronic obstructive pulmonary disease [Unknown]
  - Swelling [Recovering/Resolving]
  - Insomnia [Recovering/Resolving]
  - Middle insomnia [Recovering/Resolving]
  - Asthenia [Recovering/Resolving]
  - Product use in unapproved indication [Unknown]
